FAERS Safety Report 19951447 (Version 1)
Quarter: 2021Q4

REPORT INFORMATION
  Report Type: Other
  Country: US (occurrence: US)
  Receive Date: 20211014
  Receipt Date: 20211014
  Transmission Date: 20220303
  Serious: No
  Sender: FDA-Public Use
  Company Number: US-NEUROCRINE BIOSCIENCES INC.-2021NBI05707

PATIENT

DRUGS (4)
  1. INGREZZA [Suspect]
     Active Substance: VALBENAZINE
     Indication: Tardive dyskinesia
     Dosage: 40 MILLIGRAM, QD
     Route: 048
     Dates: start: 20210910
  2. BENZTROPINE [Concomitant]
     Active Substance: BENZTROPINE
     Indication: Movement disorder
     Dosage: 2,(UNIT UNSPECIFED)
     Route: 048
  3. ZIPRASIDONE [Concomitant]
     Active Substance: ZIPRASIDONE
     Indication: Schizophrenia
     Dosage: 80(UNIT UNSPECIFIED), BID
     Route: 048
  4. PANTOPRAZOLE [Concomitant]
     Active Substance: PANTOPRAZOLE
     Indication: Gastrooesophageal reflux disease
     Dosage: 40 MILLIGRAM, QD
     Route: 048

REACTIONS (1)
  - Tardive dyskinesia [Not Recovered/Not Resolved]

NARRATIVE: CASE EVENT DATE: 20211001
